FAERS Safety Report 10147512 (Version 2)
Quarter: 2014Q2

REPORT INFORMATION
  Report Type: Spontaneous
  Country: IT (occurrence: IT)
  Receive Date: 20140501
  Receipt Date: 20140605
  Transmission Date: 20141212
  Serious: Yes (Other)
  Sender: FDA-Public Use
  Company Number: IT-MYLANLABS-2014S1009375

PATIENT
  Age: 32 Year
  Sex: Female

DRUGS (1)
  1. LEVOFLOXACIN [Suspect]
     Indication: URINARY TRACT INFECTION
     Dosage: 1 DF DAILY
     Route: 048
     Dates: start: 20140407, end: 20140413

REACTIONS (4)
  - Hallucination [Recovering/Resolving]
  - Paraesthesia [Recovering/Resolving]
  - Psychomotor hyperactivity [Recovering/Resolving]
  - Tremor [Recovering/Resolving]
